FAERS Safety Report 8223996-9 (Version None)
Quarter: 2012Q1

REPORT INFORMATION
  Report Type: 
  Country: None (occurrence: None)
  Receive Date: 20120321
  Receipt Date: 20120312
  Transmission Date: 20120608
  Serious: Yes (Other)
  Sender: FDA-Public Use
  Company Number: GB-TEVA-328545ISR

PATIENT
  Age: 40 Year
  Sex: Female
  Weight: 96 kg

DRUGS (3)
  1. LEVOTHYROXINE SODIUM [Suspect]
     Indication: HYPOTHYROIDISM
     Dosage: 100MG - 125MG
     Route: 048
     Dates: start: 20110901
  2. LEVOTHYROXINE SODIUM [Interacting]
     Dosage: 100MG - 125MG
     Route: 048
     Dates: end: 20111101
  3. VALPROATE SODIUM [Interacting]
     Indication: EPILEPSY
     Dosage: 1400 MILLIGRAM;
     Route: 048

REACTIONS (2)
  - DRUG INTERACTION [None]
  - EPILEPSY [None]
